FAERS Safety Report 18249940 (Version 2)
Quarter: 2020Q3

REPORT INFORMATION
  Report Type: Spontaneous
  Country: RU (occurrence: RU)
  Receive Date: 20200910
  Receipt Date: 20200922
  Transmission Date: 20201103
  Serious: Yes (Other)
  Sender: FDA-Public Use
  Company Number: NVSC2020RU246094

PATIENT
  Sex: Female

DRUGS (3)
  1. METHOTREXATE. [Suspect]
     Active Substance: METHOTREXATE
     Indication: PSORIASIS
     Dosage: 15 MG QW
     Route: 065
     Dates: start: 201501
  2. METHOTREXATE. [Suspect]
     Active Substance: METHOTREXATE
     Dosage: 15 MG, QD (1 TIME IN A WEEK)
     Route: 065
     Dates: start: 201506
  3. METHOTREXATE. [Suspect]
     Active Substance: METHOTREXATE
     Indication: PSORIATIC ARTHROPATHY
     Dosage: 10 MG, QW
     Route: 065
     Dates: start: 201501

REACTIONS (2)
  - Breast cancer female [Unknown]
  - Psoriasis [Unknown]

NARRATIVE: CASE EVENT DATE: 201505
